FAERS Safety Report 18311136 (Version 1)
Quarter: 2020Q3

REPORT INFORMATION
  Report Type: Spontaneous
  Country: US (occurrence: US)
  Receive Date: 20200925
  Receipt Date: 20200925
  Transmission Date: 20201103
  Serious: Yes (Hospitalization, Other)
  Sender: FDA-Public Use
  Company Number: US-BRISTOL-MYERS SQUIBB COMPANY-BMS-2020-077420

PATIENT
  Age: 62 Year
  Sex: Female
  Weight: 91 kg

DRUGS (1)
  1. ELIQUIS [Suspect]
     Active Substance: APIXABAN
     Indication: GASTRIC ANTRAL VASCULAR ECTASIA
     Dosage: 5 MILLIGRAM, BID
     Route: 065
     Dates: start: 202004

REACTIONS (10)
  - Dyspnoea [Unknown]
  - Blood iron decreased [Unknown]
  - Intentional product use issue [Unknown]
  - Swelling [Unknown]
  - Palpitations [Unknown]
  - Chest pain [Unknown]
  - Cellulitis [Unknown]
  - Weight increased [Unknown]
  - Gastric haemorrhage [Unknown]
  - Fluid retention [Unknown]

NARRATIVE: CASE EVENT DATE: 2020
